FAERS Safety Report 20129623 (Version 1)
Quarter: 2021Q4

REPORT INFORMATION
  Report Type: Spontaneous
  Country: US (occurrence: US)
  Receive Date: 20211130
  Receipt Date: 20211130
  Transmission Date: 20220303
  Serious: No
  Sender: FDA-Public Use
  Company Number: US-APOTEX-2021AP045527

PATIENT
  Sex: Female

DRUGS (11)
  1. NICOTINE TRANSDERMAL SYSTEM [Suspect]
     Active Substance: NICOTINE
     Indication: Smoking cessation therapy
     Dosage: 1 DOSAGE FORM, QD
     Route: 062
     Dates: start: 20211103
  2. PRILOSEC [Concomitant]
     Active Substance: OMEPRAZOLE MAGNESIUM
     Indication: Product used for unknown indication
     Dosage: 1 DOSAGE FORM, 30 MINUTES TO 1 HOUR BEFORE EATING
     Route: 065
  3. FERROUS GLUCONATE [Concomitant]
     Active Substance: FERROUS GLUCONATE
     Indication: Mineral supplementation
     Dosage: 1 DOSAGE FORM (30 MINUTES TO 1 HOUR BEFORE EATING)
     Route: 065
  4. FERROUS GLUCONATE [Concomitant]
     Active Substance: FERROUS GLUCONATE
     Dosage: 1 DOSAGE FORM (BEFORE BEDTIME)
     Route: 065
  5. FOLIC ACID [Concomitant]
     Active Substance: FOLIC ACID
     Indication: Product used for unknown indication
     Dosage: UNK
     Route: 065
  6. ZINC [Concomitant]
     Active Substance: ZINC
     Indication: Product used for unknown indication
     Dosage: UNK
     Route: 065
  7. VITAMIN C [Concomitant]
     Active Substance: ASCORBIC ACID
     Indication: Product used for unknown indication
     Dosage: UNK
     Route: 065
  8. VITAMIN B1 [Concomitant]
     Active Substance: THIAMINE HYDROCHLORIDE
     Indication: Product used for unknown indication
     Dosage: UNK
     Route: 065
  9. VITAMIN D3 [Concomitant]
     Active Substance: CHOLECALCIFEROL
     Indication: Product used for unknown indication
     Dosage: UNK
     Route: 065
  10. TETRABENAZINE [Concomitant]
     Active Substance: TETRABENAZINE
     Indication: Product used for unknown indication
     Dosage: UNK, WHILE EATING
     Route: 065
  11. NADOLOL [Concomitant]
     Active Substance: NADOLOL
     Indication: Hypertension
     Dosage: UNK, BEFORE BEDTIME
     Route: 065

REACTIONS (1)
  - Nightmare [Recovered/Resolved]

NARRATIVE: CASE EVENT DATE: 20211101
